FAERS Safety Report 21172986 (Version 1)
Quarter: 2022Q3

REPORT INFORMATION
  Report Type: Spontaneous
  Country: US (occurrence: US)
  Receive Date: 20220804
  Receipt Date: 20220804
  Transmission Date: 20221027
  Serious: Yes (Hospitalization, Other)
  Sender: FDA-Public Use
  Company Number: US-AMGEN-USASP2022128896

PATIENT
  Age: 25 Year
  Sex: Male

DRUGS (2)
  1. BLINATUMOMAB [Suspect]
     Active Substance: BLINATUMOMAB
     Indication: Acute lymphocytic leukaemia
     Route: 065
  2. DASATINIB [Concomitant]
     Active Substance: DASATINIB
     Indication: Acute lymphocytic leukaemia

REACTIONS (8)
  - Graft versus host disease in liver [Recovered/Resolved]
  - Post transplant lymphoproliferative disorder [Unknown]
  - Plasma cell myeloma [Unknown]
  - Anaemia [Unknown]
  - Febrile neutropenia [Unknown]
  - Thrombocytopenia [Unknown]
  - Mucosal inflammation [Unknown]
  - Eczema [Unknown]
